FAERS Safety Report 25720737 (Version 1)
Quarter: 2025Q3

REPORT INFORMATION
  Report Type: Spontaneous
  Country: US (occurrence: US)
  Receive Date: 20250825
  Receipt Date: 20250825
  Transmission Date: 20251020
  Serious: No
  Sender: ELI LILLY AND COMPANY
  Company Number: US-ELI_LILLY_AND_COMPANY-US202508015487

PATIENT
  Age: 78 Year
  Sex: Female

DRUGS (1)
  1. ZEPBOUND [Suspect]
     Active Substance: TIRZEPATIDE
     Indication: Weight control
     Dosage: 2.5 MG, WEEKLY (1/W)
     Route: 065
     Dates: start: 20250730

REACTIONS (9)
  - Insomnia [Unknown]
  - Agitation [Unknown]
  - Anxiety [Unknown]
  - Nervousness [Unknown]
  - Irritability [Unknown]
  - Feeling abnormal [Unknown]
  - Decreased appetite [Unknown]
  - Mobility decreased [Unknown]
  - Fatigue [Unknown]

NARRATIVE: CASE EVENT DATE: 20250730
